FAERS Safety Report 7606463-2 (Version None)
Quarter: 2011Q3

REPORT INFORMATION
  Report Type: 
  Country: None (occurrence: None)
  Receive Date: 20110713
  Receipt Date: 20110707
  Transmission Date: 20111222
  Serious: Yes (Hospitalization, Other)
  Sender: FDA-Public Use
  Company Number: US-ABBOTT-11P-163-0729755-00

PATIENT
  Sex: Male
  Weight: 74.456 kg

DRUGS (25)
  1. UNKNOWN EPIDURAL MEDICATION [Suspect]
     Indication: INTERVERTEBRAL DISC PROTRUSION
     Dates: start: 20091202, end: 20091202
  2. UNKNOWN EPIDURAL MEDICATION [Suspect]
     Indication: BONE PAIN
  3. VANCOMYCIN [Suspect]
     Indication: STAPHYLOCOCCAL INFECTION
     Dosage: HOME INFUSIONS
     Dates: start: 20100101, end: 20100201
  4. DOXYCYCLINE [Suspect]
     Indication: INTERVERTEBRAL DISCITIS
  5. RAMIPRIL [Concomitant]
     Indication: PRODUCT USED FOR UNKNOWN INDICATION
  6. ENALAPRIL MALEATE [Concomitant]
     Indication: PRODUCT USED FOR UNKNOWN INDICATION
  7. VICODIN [Concomitant]
     Indication: PRODUCT USED FOR UNKNOWN INDICATION
  8. ZANTAC [Concomitant]
     Indication: PRODUCT USED FOR UNKNOWN INDICATION
  9. DOXYCYCLINE [Suspect]
     Indication: OSTEOMYELITIS
  10. UNKNOWN LIPID MEDICATION [Concomitant]
     Indication: LIPIDS ABNORMAL
  11. IBUPROFEN (ADVIL) [Concomitant]
     Indication: PRODUCT USED FOR UNKNOWN INDICATION
  12. BETA CAROTENE [Concomitant]
     Indication: PRODUCT USED FOR UNKNOWN INDICATION
  13. METHOTREXATE [Concomitant]
     Indication: PSORIATIC ARTHROPATHY
     Dates: start: 20110501
  14. UNKNOWN BLOOD PRESSURE MEDICATION [Concomitant]
     Indication: BLOOD PRESSURE ABNORMAL
  15. CRESTOR [Concomitant]
     Indication: PRODUCT USED FOR UNKNOWN INDICATION
  16. POTASSIUM SUPPLEMENTS [Concomitant]
     Indication: PRODUCT USED FOR UNKNOWN INDICATION
  17. MELOXICAM [Concomitant]
     Indication: PRODUCT USED FOR UNKNOWN INDICATION
  18. HUMIRA [Suspect]
     Indication: PSORIATIC ARTHROPATHY
     Route: 058
     Dates: start: 20071001, end: 20100101
  19. METHOTREXATE [Concomitant]
  20. COENZYME Q10 [Concomitant]
     Indication: PRODUCT USED FOR UNKNOWN INDICATION
  21. VANCOMYCIN [Suspect]
     Indication: OSTEOMYELITIS
     Dates: start: 20100301, end: 20100301
  22. INSULIN [Concomitant]
     Indication: PRODUCT USED FOR UNKNOWN INDICATION
  23. VANCOMYCIN [Suspect]
     Indication: INTERVERTEBRAL DISCITIS
     Dosage: RX WITH 8 WEEKS IV VANCOMYCIN
  24. DOXYCYCLINE [Suspect]
     Indication: STAPHYLOCOCCAL INFECTION
     Route: 048
     Dates: start: 20100301, end: 20100801
  25. UNKNOWN ACID REFLUX MEDICATION [Concomitant]
     Indication: GASTROOESOPHAGEAL REFLUX DISEASE

REACTIONS (31)
  - INTERVERTEBRAL DISC PROTRUSION [None]
  - DIARRHOEA [None]
  - INTERVERTEBRAL DISC DEGENERATION [None]
  - PSORIATIC ARTHROPATHY [None]
  - C-REACTIVE PROTEIN INCREASED [None]
  - SUNBURN [None]
  - HYPERLIPIDAEMIA [None]
  - DIZZINESS [None]
  - NAUSEA [None]
  - PAIN IN EXTREMITY [None]
  - JOINT INSTABILITY [None]
  - CLOSTRIDIAL INFECTION [None]
  - PYREXIA [None]
  - INTERVERTEBRAL DISCITIS [None]
  - BACK PAIN [None]
  - GAIT DISTURBANCE [None]
  - ABDOMINAL PAIN [None]
  - ABDOMINAL DISCOMFORT [None]
  - PARAESTHESIA [None]
  - ARTHRALGIA [None]
  - OSTEOMYELITIS [None]
  - BONE PAIN [None]
  - RED BLOOD CELL SEDIMENTATION RATE INCREASED [None]
  - STAPHYLOCOCCAL INFECTION [None]
  - NIGHT SWEATS [None]
  - HYPERTENSION [None]
  - VOMITING [None]
  - DYSSTASIA [None]
  - HAND DEFORMITY [None]
  - CHILLS [None]
  - DEPRESSION [None]
